FAERS Safety Report 18802843 (Version 1)
Quarter: 2021Q1

REPORT INFORMATION
  Report Type: Spontaneous
  Country: US (occurrence: US)
  Receive Date: 20210128
  Receipt Date: 20210128
  Transmission Date: 20210419
  Serious: Yes (Other)
  Sender: FDA-Public Use
  Company Number: US-TEVA-2021-US-1872067

PATIENT
  Age: 20 Month
  Sex: Female

DRUGS (3)
  1. PREDNISONE. [Suspect]
     Active Substance: PREDNISONE
     Indication: INFANTILE SPASMS
     Dosage: 8 MG/KG DAILY;
     Route: 065
  2. VIGABATRIN. [Suspect]
     Active Substance: VIGABATRIN
     Indication: INFANTILE SPASMS
     Dosage: 150 MG/KG DAILY;
     Route: 065
  3. ACTH [Suspect]
     Active Substance: CORTICOTROPIN
     Indication: INFANTILE SPASMS
     Dosage: 64 IU (INTERNATIONAL UNIT) DAILY; 150 U/M2 BODY SURFACE AREA PER DAY (64 U/DAY)
     Route: 065

REACTIONS (5)
  - Treatment failure [Unknown]
  - Aspiration [Unknown]
  - Poor sucking reflex [Unknown]
  - Magnetic resonance imaging brain abnormal [Unknown]
  - Somnolence [Unknown]
